FAERS Safety Report 14277906 (Version 3)
Quarter: 2018Q1

REPORT INFORMATION
  Report Type: Spontaneous
  Country: US (occurrence: US)
  Receive Date: 20171212
  Receipt Date: 20180111
  Transmission Date: 20180508
  Serious: No
  Sender: FDA-Public Use
  Company Number: US-PFIZER INC-2017477972

PATIENT
  Age: 5 Year
  Sex: Male

DRUGS (1)
  1. XALKORI [Suspect]
     Active Substance: CRIZOTINIB
     Indication: ANAPLASTIC LARGE-CELL LYMPHOMA
     Dosage: 250 MG, 2X/DAY
     Route: 048
     Dates: start: 201104

REACTIONS (1)
  - Diarrhoea [Recovered/Resolved]
